FAERS Safety Report 6058487-7 (Version None)
Quarter: 2009Q1

REPORT INFORMATION
  Report Type: 
  Country: None (occurrence: None)
  Receive Date: 20090130
  Receipt Date: 20090121
  Transmission Date: 20090719
  Serious: Yes (Other)
  Sender: FDA-Public Use
  Company Number: PHHY2008GB31936

PATIENT
  Sex: Male

DRUGS (6)
  1. IMATINIB MESYLATE [Suspect]
     Indication: GASTROINTESTINAL STROMAL TUMOUR
     Dosage: 400 MG/DAY
  2. IMATINIB MESYLATE [Suspect]
     Dosage: 400 MG/DAY
     Dates: start: 20070101, end: 20080201
  3. IMATINIB MESYLATE [Suspect]
     Dosage: 300 MG/DAY
  4. IMATINIB MESYLATE [Suspect]
     Dosage: 200 MG, QD
  5. LISINOPRIL [Concomitant]
     Dosage: 5 MG/DAY
  6. AMLODIPINE [Concomitant]
     Dosage: 5 MG/DAY

REACTIONS (21)
  - ALANINE AMINOTRANSFERASE INCREASED [None]
  - AURICULAR SWELLING [None]
  - BLOOD ALKALINE PHOSPHATASE INCREASED [None]
  - BLOOD CALCIUM DECREASED [None]
  - BLOOD GLUCOSE INCREASED [None]
  - BLOOD POTASSIUM INCREASED [None]
  - BLOOD UREA DECREASED [None]
  - DRUG INTOLERANCE [None]
  - DRUG TOXICITY [None]
  - EYE SWELLING [None]
  - GAMMA-GLUTAMYLTRANSFERASE INCREASED [None]
  - HEPATIC LESION [None]
  - HIGH FREQUENCY ABLATION [None]
  - LACRIMATION INCREASED [None]
  - MALIGNANT NEOPLASM PROGRESSION [None]
  - PERIORBITAL OEDEMA [None]
  - PROTEIN TOTAL DECREASED [None]
  - RED BLOOD CELL COUNT DECREASED [None]
  - TREATMENT FAILURE [None]
  - VISUAL ACUITY REDUCED [None]
  - VISUAL FIELD DEFECT [None]
